FAERS Safety Report 16646848 (Version 1)
Quarter: 2019Q3

REPORT INFORMATION
  Report Type: Spontaneous
  Country: US (occurrence: US)
  Receive Date: 20190730
  Receipt Date: 20190730
  Transmission Date: 20191004
  Serious: Yes (Life-Threatening)
  Sender: FDA-Public Use
  Company Number: US-JNJFOC-20190732557

PATIENT
  Age: 55 Year
  Sex: Male

DRUGS (8)
  1. SPORANOX [Suspect]
     Active Substance: ITRACONAZOLE
     Indication: ASPERGILLUS INFECTION
     Dosage: UNK (TREATMENT: 71-82 DAYS)
     Route: 065
  2. AMPHOTERICIN B, LIPOSOME [Suspect]
     Active Substance: AMPHOTERICIN B
     Indication: ASPERGILLUS INFECTION
  3. SPORANOX [Suspect]
     Active Substance: ITRACONAZOLE
     Indication: OSTEOMYELITIS FUNGAL
  4. FLUCONAZOLE. [Suspect]
     Active Substance: FLUCONAZOLE
     Indication: OSTEOMYELITIS FUNGAL
     Dosage: UNK (TREATMENT 0-17 DAYS)
     Route: 065
  5. AMPHOTERICIN B, LIPOSOME [Suspect]
     Active Substance: AMPHOTERICIN B
     Indication: OSTEOMYELITIS FUNGAL
     Dosage: UNK (TREATMENT 83-UNKNOWN DAYS)
     Route: 065
  6. FLUCONAZOLE. [Suspect]
     Active Substance: FLUCONAZOLE
     Indication: ASPERGILLUS INFECTION
  7. VORICONAZOLE. [Suspect]
     Active Substance: VORICONAZOLE
     Indication: OSTEOMYELITIS FUNGAL
     Dosage: UNK (TREATMENT 18-70 DAYS)
     Route: 065
  8. VORICONAZOLE. [Suspect]
     Active Substance: VORICONAZOLE
     Indication: ASPERGILLUS INFECTION

REACTIONS (2)
  - Drug ineffective [Unknown]
  - Condition aggravated [Unknown]
